FAERS Safety Report 4762384-4 (Version None)
Quarter: 2005Q3

REPORT INFORMATION
  Report Type: 
  Country: None (occurrence: None)
  Receive Date: 20050902
  Receipt Date: 20050516
  Transmission Date: 20060218
  Serious: Yes (Other)
  Sender: FDA-Public Use
  Company Number: 2005S1002248

PATIENT
  Age: 57 Year
  Sex: Female
  Weight: 113.3993 kg

DRUGS (25)
  1. FENTANYL [Suspect]
     Indication: FIBROMYALGIA
     Dosage: 25 MCG/HR; QOD; TDER
     Dates: start: 20050328, end: 20050329
  2. FENTANYL [Suspect]
     Indication: PAIN
     Dosage: 25 MCG/HR; QOD; TDER
     Dates: start: 20050328, end: 20050329
  3. ESOMEPRAZOLE MAGNESIUM [Concomitant]
  4. DESLORATADINE [Concomitant]
  5. CELECOXIB [Concomitant]
  6. FOLIC ACID [Concomitant]
  7. MONTELUKAST [Concomitant]
  8. CALCIUM CITRATE [Concomitant]
  9. NICOTINIC ACID [Concomitant]
  10. OLOPATADINE HYDROCHLORIDE [Concomitant]
  11. PETHIDINE HYDROCHLORIDE [Concomitant]
  12. LOPERAMIDE [Concomitant]
  13. VENLAFAXINE [Concomitant]
  14. BISMUTH SUBSALICYLATE [Concomitant]
  15. SODIUM CHLORIDE [Concomitant]
  16. POLYVINYL ALCOHOL/POLYVIDONE [Concomitant]
  17. CYCLOSPORIN EYE DROPS [Concomitant]
  18. HYPROMELLOSE [Concomitant]
  19. HERBAL PREPARATION [Concomitant]
  20. CALCIUM CITRATE W/COLECALCIFEROL [Concomitant]
  21. ASPIRIN [Concomitant]
  22. ACETAMINOPHEN [Concomitant]
  23. GLUCOSAMINE [Concomitant]
  24. UBIDECARENONE [Concomitant]
  25. COD-LIVER OIL [Concomitant]

REACTIONS (17)
  - ABDOMINAL PAIN UPPER [None]
  - ABNORMAL DREAMS [None]
  - APPLICATION SITE ERYTHEMA [None]
  - APPLICATION SITE PRURITUS [None]
  - ASTHENIA [None]
  - CONFUSIONAL STATE [None]
  - DISTURBANCE IN ATTENTION [None]
  - DIZZINESS [None]
  - DRUG INEFFECTIVE [None]
  - DYSPNOEA [None]
  - HEADACHE [None]
  - HYPOAESTHESIA ORAL [None]
  - INSOMNIA [None]
  - PALPITATIONS [None]
  - SPEECH DISORDER [None]
  - VISION BLURRED [None]
  - VISUAL DISTURBANCE [None]
